FAERS Safety Report 13644959 (Version 1)
Quarter: 2017Q2

REPORT INFORMATION
  Report Type: Spontaneous
  Country: US (occurrence: US)
  Receive Date: 20170612
  Receipt Date: 20170612
  Transmission Date: 20170830
  Serious: No
  Sender: FDA-Public Use
  Company Number: US-ROCHE-1382161

PATIENT
  Sex: Female
  Weight: 60.4 kg

DRUGS (6)
  1. LISINOPRIL. [Concomitant]
     Active Substance: LISINOPRIL
  2. VITAMIN B6 [Concomitant]
     Active Substance: PYRIDOXINE HYDROCHLORIDE
  3. IMODIUM [Concomitant]
     Active Substance: LOPERAMIDE HYDROCHLORIDE
  4. XELODA [Suspect]
     Active Substance: CAPECITABINE
     Indication: COLON CANCER
     Dosage: REDUCED DOSE FROM 3 TABLETS BID TO 2 BID
     Route: 048
     Dates: start: 20140226
  5. XELODA [Suspect]
     Active Substance: CAPECITABINE
     Indication: MALIGNANT URINARY TRACT NEOPLASM
  6. XELODA [Suspect]
     Active Substance: CAPECITABINE
     Indication: RECTAL CANCER

REACTIONS (4)
  - Skin fissures [Unknown]
  - Palmar-plantar erythrodysaesthesia syndrome [Not Recovered/Not Resolved]
  - Erythema [Unknown]
  - Diarrhoea [Not Recovered/Not Resolved]
